FAERS Safety Report 5062677-X (Version None)
Quarter: 2006Q3

REPORT INFORMATION
  Report Type: 
  Country: None (occurrence: None)
  Receive Date: 20060703
  Receipt Date: 20051021
  Transmission Date: 20061208
  Serious: No
  Sender: FDA-Public Use
  Company Number: 2005S1010684

PATIENT
  Age: 35 Year
  Sex: Male

DRUGS (6)
  1. CLOZAPINE [Suspect]
     Indication: PSYCHOTIC DISORDER
     Dosage: SEE IMAGE
     Route: 048
  2. VALPROATE SODIUM [Concomitant]
  3. HALOPERIDOL [Concomitant]
  4. PROPRANOLOL [Concomitant]
  5. BENZTROPINE MESYLATE [Concomitant]
  6. SETRALINE HCL [Concomitant]

REACTIONS (1)
  - GRANULOCYTOPENIA [None]
